FAERS Safety Report 6600759-9 (Version None)
Quarter: 2010Q1

REPORT INFORMATION
  Report Type: 
  Country: None (occurrence: None)
  Receive Date: 20100225
  Receipt Date: 20100216
  Transmission Date: 20100710
  Serious: Yes (Hospitalization)
  Sender: FDA-Public Use
  Company Number: US-BIOGENIDEC-2009BI005938

PATIENT
  Age: 45 Year
  Sex: Female

DRUGS (1)
  1. TYSABRI [Suspect]
     Indication: MULTIPLE SCLEROSIS
     Route: 042
     Dates: start: 20081117, end: 20090119

REACTIONS (5)
  - DECREASED IMMUNE RESPONSIVENESS [None]
  - EYE DISORDER [None]
  - FLANK PAIN [None]
  - IRITIS [None]
  - MEMORY IMPAIRMENT [None]
